FAERS Safety Report 19203764 (Version 1)
Quarter: 2021Q2

REPORT INFORMATION
  Report Type: Spontaneous
  Country: US (occurrence: US)
  Receive Date: 20210503
  Receipt Date: 20210503
  Transmission Date: 20210717
  Serious: Yes (Other)
  Sender: FDA-Public Use
  Company Number: US-ORGANON-O2104USA002488

PATIENT
  Age: 6 Week
  Sex: Male

DRUGS (10)
  1. DESONIDE. [Suspect]
     Active Substance: DESONIDE
     Dosage: FORMULATION: CREAM OR LOTION, TWICE?DAILY
     Route: 061
  2. DIPROLENE AF [Suspect]
     Active Substance: BETAMETHASONE DIPROPIONATE
     Indication: ECZEMA
     Dosage: UNK
     Route: 061
  3. ELOCON [Suspect]
     Active Substance: MOMETASONE FUROATE
     Dosage: TWICE?DAILY (BID)
     Route: 061
  4. HYDROCORTISONE. [Suspect]
     Active Substance: HYDROCORTISONE
     Indication: ECZEMA
     Dosage: UNK
     Route: 061
  5. DESONIDE. [Suspect]
     Active Substance: DESONIDE
     Indication: ECZEMA
     Dosage: FORMULATION: CREAM OR LOTION
     Route: 061
  6. HYDROCORTISONE. [Suspect]
     Active Substance: HYDROCORTISONE
     Indication: ECZEMA
     Dosage: UNK
     Route: 061
  7. CLOBETASOL PROPIONATE. [Suspect]
     Active Substance: CLOBETASOL PROPIONATE
     Indication: ECZEMA
     Dosage: UNK
     Route: 061
  8. ELOCON [Suspect]
     Active Substance: MOMETASONE FUROATE
     Indication: ECZEMA
     Dosage: UNK
     Route: 061
  9. HYDROCORTISONE. [Suspect]
     Active Substance: HYDROCORTISONE
     Indication: ECZEMA
     Dosage: UNK
     Route: 061
  10. BETAMETHASONE VALERATE. [Suspect]
     Active Substance: BETAMETHASONE VALERATE
     Indication: ECZEMA
     Dosage: UNK
     Route: 061

REACTIONS (3)
  - Product use issue [Unknown]
  - Cushing^s syndrome [Unknown]
  - Product prescribing issue [Unknown]
